FAERS Safety Report 24335303 (Version 3)
Quarter: 2024Q4

REPORT INFORMATION
  Report Type: Report from Study
  Country: US (occurrence: US)
  Receive Date: 20240918
  Receipt Date: 20241030
  Transmission Date: 20250114
  Serious: Yes (Hospitalization)
  Sender: ABBVIE
  Company Number: US-ABBVIE-5923982

PATIENT
  Sex: Female

DRUGS (1)
  1. HUMIRA [Suspect]
     Active Substance: ADALIMUMAB
     Indication: Crohn^s disease
     Dosage: FORM STRENGTH: 40 MILLIGRAM
     Route: 058
     Dates: start: 20240307

REACTIONS (8)
  - Generalised tonic-clonic seizure [Unknown]
  - Fall [Unknown]
  - Therapeutic product effect incomplete [Unknown]
  - Autoimmune thyroiditis [Unknown]
  - Stress [Unknown]
  - Weight increased [Recovering/Resolving]
  - Upper limb fracture [Recovering/Resolving]
  - Crohn^s disease [Unknown]

NARRATIVE: CASE EVENT DATE: 20240101
